FAERS Safety Report 10846960 (Version 3)
Quarter: 2015Q1

REPORT INFORMATION
  Report Type: Spontaneous
  Country: GR (occurrence: GR)
  Receive Date: 20150220
  Receipt Date: 20150309
  Transmission Date: 20150721
  Serious: Yes (Hospitalization)
  Sender: FDA-Public Use
  Company Number: GR-B.I. PHARMACEUTICALS,INC./RIDGEFIELD-2015-BI-08875GD

PATIENT
  Age: 58 Year
  Sex: Male

DRUGS (8)
  1. ROPIVACAINE [Suspect]
     Active Substance: ROPIVACAINE
     Indication: COMPLEX REGIONAL PAIN SYNDROME
     Dosage: 6 ML ROPIVACAINE 0.2%
     Route: 008
  2. FENTANYL. [Suspect]
     Active Substance: FENTANYL
     Indication: COMPLEX REGIONAL PAIN SYNDROME
     Route: 008
  3. BETAMETHASONE ACETATE AND PHOSPHATE [Suspect]
     Active Substance: BETAMETHASONE ACETATE\BETAMETHASONE SODIUM PHOSPHATE
     Indication: COMPLEX REGIONAL PAIN SYNDROME
     Dosage: BETAMETHASONE ACETATE AND PHOSPHATE, 3+3 MG
     Route: 008
  4. CLONIDINE. [Suspect]
     Active Substance: CLONIDINE
     Indication: RADICULOPATHY
  5. ROPIVACAINE [Suspect]
     Active Substance: ROPIVACAINE
     Indication: RADICULOPATHY
  6. BETAMETHASONE ACETATE AND PHOSPHATE [Suspect]
     Active Substance: BETAMETHASONE ACETATE\BETAMETHASONE SODIUM PHOSPHATE
     Indication: RADICULOPATHY
  7. FENTANYL. [Suspect]
     Active Substance: FENTANYL
     Indication: RADICULOPATHY
  8. CLONIDINE. [Suspect]
     Active Substance: CLONIDINE
     Indication: COMPLEX REGIONAL PAIN SYNDROME
     Route: 008

REACTIONS (8)
  - Urinary incontinence [Recovered/Resolved]
  - Loss of consciousness [Recovered/Resolved]
  - Sensory loss [Recovered/Resolved]
  - Myoclonus [Recovered/Resolved]
  - Motor dysfunction [Recovered/Resolved]
  - Product use issue [Unknown]
  - Sensory disturbance [Unknown]
  - Back pain [Recovered/Resolved]
